FAERS Safety Report 21505917 (Version 1)
Quarter: 2022Q4

REPORT INFORMATION
  Report Type: Spontaneous
  Country: US (occurrence: US)
  Receive Date: 20221026
  Receipt Date: 20221026
  Transmission Date: 20230113
  Serious: Yes (Other)
  Sender: FDA-Public Use
  Company Number: US-ABBVIE-4176059

PATIENT

DRUGS (1)
  1. LUPRON DEPOT [Suspect]
     Active Substance: LEUPROLIDE ACETATE
     Indication: Product used for unknown indication
     Route: 065

REACTIONS (13)
  - Syncope [Unknown]
  - Seasonal allergy [Unknown]
  - Invasive ductal breast carcinoma [Unknown]
  - Migraine [Unknown]
  - Hepatomegaly [Unknown]
  - Hypertransaminasaemia [Unknown]
  - Dizziness [Unknown]
  - Arthralgia [Unknown]
  - Tachycardia [Unknown]
  - Hyperglycaemia [Unknown]
  - Hepatic steatosis [Unknown]
  - Amenorrhoea [Unknown]
  - Lactic acidosis [Unknown]

NARRATIVE: CASE EVENT DATE: 20220721
